FAERS Safety Report 4359316-X (Version None)
Quarter: 2004Q2

REPORT INFORMATION
  Report Type: 
  Country: None (occurrence: None)
  Receive Date: 20040512
  Receipt Date: 20040428
  Transmission Date: 20050107
  Serious: Yes (Death)
  Sender: FDA-Public Use
  Company Number: EWC040338662

PATIENT
  Age: 87 Year
  Sex: Female

DRUGS (8)
  1. OLANZAPINE [Suspect]
     Dosage: 2.5 MG DAY
     Route: 048
     Dates: start: 20020913
  2. FUROSEMIDE [Concomitant]
  3. CAPTOPRIL [Concomitant]
  4. CITALOPRAM [Concomitant]
  5. FERROSI FUMARAS [Concomitant]
  6. FLURAZEPAM [Concomitant]
  7. HOMEOPATHIC AGENT [Concomitant]
  8. RISPERDAL [Concomitant]

REACTIONS (6)
  - CATARACT [None]
  - CONFUSIONAL STATE [None]
  - DELUSION [None]
  - PARANOIA [None]
  - REFUSAL OF TREATMENT BY PATIENT [None]
  - SUDDEN DEATH [None]
